FAERS Safety Report 17565331 (Version 1)
Quarter: 2020Q1

REPORT INFORMATION
  Report Type: Spontaneous
  Country: US (occurrence: US)
  Receive Date: 20200313
  Receipt Date: 20200313
  Transmission Date: 20200409
  Serious: Yes (Hospitalization)
  Sender: FDA-Public Use
  Company Number: None

PATIENT
  Age: 59 Year
  Sex: Female
  Weight: 56.3 kg

DRUGS (1)
  1. IRINOTECAN 100MG X2 [Suspect]
     Active Substance: IRINOTECAN HYDROCHLORIDE
     Indication: PANCREATIC CARCINOMA
     Dosage: FREQUENCY: EVERY 2 WEEKS
     Route: 058
     Dates: start: 20200217

REACTIONS (4)
  - Dizziness [None]
  - Nausea [None]
  - Apraxia [None]
  - Limb discomfort [None]

NARRATIVE: CASE EVENT DATE: 20200217
